FAERS Safety Report 7059910-1 (Version None)
Quarter: 2010Q4

REPORT INFORMATION
  Report Type: 
  Country: None (occurrence: None)
  Receive Date: 20101025
  Receipt Date: 20101014
  Transmission Date: 20110411
  Serious: Yes (Hospitalization)
  Sender: FDA-Public Use
  Company Number: CA-JNJFOC-20101004925

PATIENT
  Sex: Male

DRUGS (4)
  1. REMICADE [Suspect]
     Indication: CROHN'S DISEASE
     Route: 042
  2. REMICADE [Suspect]
     Route: 042
  3. PREDNISONE [Concomitant]
  4. OXYCONTIN [Concomitant]

REACTIONS (2)
  - LIMB OPERATION [None]
  - ROAD TRAFFIC ACCIDENT [None]
